FAERS Safety Report 15759660 (Version 2)
Quarter: 2019Q1

REPORT INFORMATION
  Report Type: Spontaneous
  Country: US (occurrence: US)
  Receive Date: 20181226
  Receipt Date: 20190104
  Transmission Date: 20190417
  Serious: No
  Sender: FDA-Public Use
  Company Number: PHEH2018US053184

PATIENT
  Sex: Female

DRUGS (2)
  1. BRIMONIDINE [Concomitant]
     Active Substance: BRIMONIDINE TARTRATE
     Indication: PRODUCT USED FOR UNKNOWN INDICATION
     Route: 065
  2. LATANOPROST. [Suspect]
     Active Substance: LATANOPROST
     Indication: PRODUCT USED FOR UNKNOWN INDICATION
     Route: 047
     Dates: start: 20181205

REACTIONS (5)
  - Blepharal pigmentation [Unknown]
  - Balance disorder [Unknown]
  - Rash [Unknown]
  - Eye pruritus [Unknown]
  - Urine odour abnormal [Unknown]
